FAERS Safety Report 12800529 (Version 1)
Quarter: 2016Q3

REPORT INFORMATION
  Report Type: Spontaneous
  Country: US (occurrence: US)
  Receive Date: 20160930
  Receipt Date: 20160930
  Transmission Date: 20161109
  Serious: Yes (Hospitalization, Other)
  Sender: FDA-Public Use
  Company Number: US-ABBVIE-16P-163-1742353-00

PATIENT
  Age: 60 Year
  Sex: Male

DRUGS (1)
  1. ANDROGEL [Suspect]
     Active Substance: TESTOSTERONE
     Indication: PRODUCT USED FOR UNKNOWN INDICATION
     Route: 061
     Dates: start: 2014

REACTIONS (6)
  - Road traffic accident [Unknown]
  - Joint injury [Recovered/Resolved]
  - Libido decreased [Unknown]
  - Blood testosterone decreased [Unknown]
  - Asthenia [Unknown]
  - Weight increased [Unknown]

NARRATIVE: CASE EVENT DATE: 2014
